FAERS Safety Report 10824215 (Version 1)
Quarter: 2015Q1

REPORT INFORMATION
  Report Type: Report from Study
  Country: US (occurrence: US)
  Receive Date: 20150219
  Receipt Date: 20150219
  Transmission Date: 20150721
  Serious: No
  Sender: FDA-Public Use
  Company Number: US-ABBVIE-14K-163-1315244-00

PATIENT
  Age: 57 Year
  Sex: Female
  Weight: 70.82 kg

DRUGS (2)
  1. ATENOLOL. [Concomitant]
     Active Substance: ATENOLOL
     Indication: HYPERTENSION
  2. HUMIRA [Suspect]
     Active Substance: ADALIMUMAB
     Indication: RHEUMATOID ARTHRITIS
     Route: 065
     Dates: start: 2012

REACTIONS (7)
  - Sinusitis [Recovered/Resolved]
  - Incorrect dose administered [Unknown]
  - Drug dose omission [Unknown]
  - Nasopharyngitis [Recovered/Resolved]
  - Injection site pain [Not Recovered/Not Resolved]
  - Device issue [Unknown]
  - Device issue [Unknown]

NARRATIVE: CASE EVENT DATE: 2012
